FAERS Safety Report 8844407 (Version 1)
Quarter: 2012Q4

REPORT INFORMATION
  Report Type: Spontaneous
  Country: IN (occurrence: None)
  Receive Date: 20121012
  Receipt Date: 20121012
  Transmission Date: 20130627
  Serious: Yes (Hospitalization, Other)
  Sender: FDA-Public Use
  Company Number: 2012POI07000004

PATIENT
  Age: 1 Day
  Weight: 2.35 kg

DRUGS (1)
  1. ZIPSOR [Suspect]
     Route: 064

REACTIONS (8)
  - Maternal drugs affecting foetus [None]
  - Renal failure neonatal [None]
  - Placental insufficiency [None]
  - Caesarean section [None]
  - Oligohydramnios [None]
  - Premature baby [None]
  - Hyperkalaemia [None]
  - Metabolic acidosis [None]
